FAERS Safety Report 7470215-7 (Version None)
Quarter: 2011Q2

REPORT INFORMATION
  Report Type: 
  Country: None (occurrence: None)
  Receive Date: 20110510
  Receipt Date: 20110503
  Transmission Date: 20111010
  Serious: Yes (Hospitalization)
  Sender: FDA-Public Use
  Company Number: FR-PFIZER INC-2011095468

PATIENT
  Age: 44 Year
  Sex: Male

DRUGS (1)
  1. SIROLIMUS [Suspect]

REACTIONS (1)
  - NECROSIS [None]
